FAERS Safety Report 7441495-9 (Version None)
Quarter: 2011Q2

REPORT INFORMATION
  Report Type: 
  Country: None (occurrence: None)
  Receive Date: 20110425
  Receipt Date: 20110425
  Transmission Date: 20111010
  Serious: No
  Sender: FDA-Public Use
  Company Number: None

PATIENT
  Age: 10 Year
  Sex: Female
  Weight: 70.3075 kg

DRUGS (3)
  1. PROPOFOL [Concomitant]
  2. OFIRMEV [Suspect]
     Indication: PERIOPERATIVE ANALGESIA
     Dosage: 900 MG X1 IV BOLUS
     Route: 040
     Dates: start: 20110407, end: 20110407
  3. LIDOCAINE [Concomitant]

REACTIONS (1)
  - STRIDOR [None]
